FAERS Safety Report 9255529 (Version 1)
Quarter: 2013Q2

REPORT INFORMATION
  Report Type: Spontaneous
  Country: ZA (occurrence: None)
  Receive Date: 20130418
  Receipt Date: 20130418
  Transmission Date: 20140414
  Serious: Yes (Hospitalization)
  Sender: FDA-Public Use
  Company Number: 2013000090

PATIENT
  Age: 54 Year
  Sex: Female

DRUGS (5)
  1. ACEON [Suspect]
     Indication: HYPERTENSION
     Route: 048
  2. AMLOC (AMLODIPINE BESILATE) [Concomitant]
  3. SPIRACTIN (SPIRONOLACTONE) [Concomitant]
  4. AMILORETIC (AMILORIDE, HYDROCHLOROTHIAZIDE) [Concomitant]
  5. ANTIVIRALS FOR TREATMENT OF HIV INFECTIONS, C [Concomitant]

REACTIONS (1)
  - Hypokalaemia [None]
